FAERS Safety Report 5625841-4 (Version None)
Quarter: 2008Q1

REPORT INFORMATION
  Report Type: 
  Country: None (occurrence: None)
  Receive Date: 20080211
  Receipt Date: 20071227
  Transmission Date: 20080703
  Serious: Yes (Hospitalization)
  Sender: FDA-Public Use
  Company Number: 2008S1000010

PATIENT
  Sex: Female

DRUGS (1)
  1. PAROXEDURA (PAROXETINE HYDROCHLORIDE) [Suspect]
     Indication: DRUG USE FOR UNKNOWN INDICATION
     Dosage: 800 MG; ORAL
     Route: 048
     Dates: start: 20071224, end: 20071224

REACTIONS (4)
  - INTENTIONAL OVERDOSE [None]
  - NAUSEA [None]
  - SOMNOLENCE [None]
  - VOMITING [None]
